FAERS Safety Report 17481412 (Version 1)
Quarter: 2020Q1

REPORT INFORMATION
  Report Type: Spontaneous
  Country: NL (occurrence: NL)
  Receive Date: 20200302
  Receipt Date: 20200302
  Transmission Date: 20200409
  Serious: Yes (Other)
  Sender: FDA-Public Use
  Company Number: NL-TEVA-2020-NL-1192969

PATIENT
  Age: 38 Year
  Sex: Female
  Weight: 51 kg

DRUGS (1)
  1. BECLOMETASON [Suspect]
     Active Substance: BECLOMETHASONE DIPROPIONATE
     Indication: NASAL INFLAMMATION
     Dosage: 50 UG/DOSE (MICROGRAMS PER DOSE), 2 TIMES A DAY, 2
     Dates: start: 20200107

REACTIONS (1)
  - Iridocyclitis [Recovering/Resolving]

NARRATIVE: CASE EVENT DATE: 20200129
